FAERS Safety Report 5012304-2 (Version None)
Quarter: 2006Q2

REPORT INFORMATION
  Report Type: 
  Country: None (occurrence: None)
  Receive Date: 20060524
  Receipt Date: 20060511
  Transmission Date: 20061013
  Serious: Yes (Life-Threatening, Hospitalization)
  Sender: FDA-Public Use
  Company Number: 144-20785-06050535

PATIENT
  Age: 69 Year
  Sex: Female

DRUGS (6)
  1. THALIDOMIDE            (THALIDOMIDE) [Suspect]
     Indication: MULTIPLE MYELOMA
     Dosage: 200 MG, DAILY, ORAL
     Route: 048
     Dates: start: 20060411, end: 20060425
  2. CYCLOPHOSPHAMIDE [Suspect]
     Indication: MULTIPLE MYELOMA
     Dosage: 50 MG, DAILY, ORAL
     Route: 048
     Dates: start: 20060411, end: 20060425
  3. DEXAMETHASONE [Suspect]
     Indication: MULTIPLE MYELOMA
     Dosage: 40 MG, DAILY, ORAL
     Route: 048
     Dates: start: 20060411, end: 20060425
  4. ENOXAPARIN SODIUM [Concomitant]
  5. NEORECORMON        (RECOMBINANT HUMAN ERYTHROPOIETIN) [Concomitant]
  6. CEFEPIME (CEFEPIME) [Concomitant]

REACTIONS (12)
  - AFFECT LABILITY [None]
  - ANXIETY [None]
  - BLOOD IMMUNOGLOBULIN G INCREASED [None]
  - CAROTID ARTERY ANEURYSM [None]
  - CEREBROVASCULAR ACCIDENT [None]
  - ENCEPHALOPATHY [None]
  - LABORATORY TEST ABNORMAL [None]
  - MASTOIDITIS [None]
  - PYREXIA [None]
  - RESPIRATORY TRACT INFECTION [None]
  - TRANSVERSE SINUS THROMBOSIS [None]
  - TREMOR [None]
